FAERS Safety Report 10694219 (Version 5)
Quarter: 2015Q2

REPORT INFORMATION
  Report Type: Spontaneous
  Country: US (occurrence: US)
  Receive Date: 20150106
  Receipt Date: 20150508
  Transmission Date: 20150821
  Serious: Yes (Other)
  Sender: FDA-Public Use
  Company Number: US-AMGEN INC.-USASP2014101394

PATIENT
  Age: 60 Year
  Sex: Female
  Weight: 66.98 kg

DRUGS (7)
  1. ENBREL [Suspect]
     Active Substance: ETANERCEPT
     Indication: RHEUMATOID ARTHRITIS
     Dosage: UNK UNK, 2 TIMES/WK
     Route: 065
     Dates: start: 2010
  2. HUMIRA [Concomitant]
     Active Substance: ADALIMUMAB
     Indication: RHEUMATOID ARTHRITIS
  3. PREDNISONE. [Concomitant]
     Active Substance: PREDNISONE
     Indication: ARTHRITIS
     Dosage: UNK
     Route: 065
  4. MELOXICAM. [Concomitant]
     Active Substance: MELOXICAM
     Indication: ARTHRITIS
     Dosage: UNK
     Route: 065
     Dates: start: 2011
  5. XELJANZ [Suspect]
     Active Substance: TOFACITINIB CITRATE
     Indication: RHEUMATOID ARTHRITIS
     Dosage: 5 MG, UNK
     Route: 065
     Dates: start: 2015
  6. HUMIRA [Concomitant]
     Active Substance: ADALIMUMAB
     Indication: ARTHRITIS
     Dosage: UNK UNK, Q2WK
     Route: 065
     Dates: start: 2012
  7. METHOTREXATE (METHOTREXATE SODIUM) [Concomitant]
     Active Substance: METHOTREXATE SODIUM
     Indication: RHEUMATOID ARTHRITIS
     Dosage: 8-2.5 TABLETS ONCE A WEEK
     Dates: end: 201410

REACTIONS (18)
  - Foot deformity [Unknown]
  - Gait disturbance [Unknown]
  - Pain [Unknown]
  - Alopecia [Unknown]
  - Rheumatoid arthritis [Unknown]
  - Finger deformity [Unknown]
  - Sleep disorder [Unknown]
  - Memory impairment [Unknown]
  - Insomnia [Unknown]
  - Mobility decreased [Unknown]
  - Knee arthroplasty [Unknown]
  - Depressed mood [Unknown]
  - Joint stiffness [Unknown]
  - Drug ineffective [Unknown]
  - Joint surgery [Unknown]
  - Activities of daily living impaired [Unknown]
  - Joint range of motion decreased [Unknown]
  - Drug effect incomplete [Unknown]
